FAERS Safety Report 5125902-2 (Version None)
Quarter: 2006Q4

REPORT INFORMATION
  Report Type: 
  Country: None (occurrence: None)
  Receive Date: 20061012
  Receipt Date: 20061010
  Transmission Date: 20070319
  Serious: Yes (Hospitalization)
  Sender: FDA-Public Use
  Company Number: FR-GLAXOSMITHKLINE-B0441472A

PATIENT
  Age: 79 Year
  Sex: Female
  Weight: 51 kg

DRUGS (20)
  1. CLAMOXYL [Suspect]
     Dosage: 1G TWICE PER DAY
     Route: 048
     Dates: start: 20060810, end: 20060815
  2. FOZITEC [Suspect]
     Dosage: 10MG PER DAY
     Route: 048
     Dates: end: 20060815
  3. ZECLAR [Suspect]
     Dosage: 500MG TWICE PER DAY
     Route: 048
     Dates: start: 20060810, end: 20060815
  4. LASIX [Concomitant]
     Route: 042
  5. DIURETICS [Concomitant]
     Route: 065
     Dates: start: 20060724
  6. SPASFON [Concomitant]
     Route: 065
     Dates: start: 20060724, end: 20060727
  7. DAFALGAN [Concomitant]
     Route: 065
  8. ROCEPHIN [Concomitant]
     Route: 065
     Dates: start: 20060726, end: 20060803
  9. OMEPRAZOLE [Concomitant]
     Indication: DUODENAL ULCER
     Route: 042
     Dates: start: 20060807
  10. CALCIPARINE [Concomitant]
     Route: 065
     Dates: start: 20060807
  11. NITRODERM [Concomitant]
     Route: 065
  12. DIGOXIN [Concomitant]
     Route: 065
     Dates: end: 20060816
  13. AMLOR [Concomitant]
     Route: 065
  14. RISORDAN [Concomitant]
     Route: 065
     Dates: start: 20060810
  15. VASTEN [Concomitant]
  16. IKOREL [Concomitant]
  17. HEMIGOXINE [Concomitant]
  18. MIXTARD HUMAN 70/30 [Concomitant]
  19. ASPEGIC 1000 [Concomitant]
  20. PREVISCAN [Concomitant]

REACTIONS (11)
  - ANURIA [None]
  - BLOOD CREATININE INCREASED [None]
  - BRADYCARDIA [None]
  - CARDIAC FAILURE [None]
  - CONFUSIONAL STATE [None]
  - HYPERKALAEMIA [None]
  - LUNG DISORDER [None]
  - OLIGURIA [None]
  - RENAL FAILURE ACUTE [None]
  - RENAL IMPAIRMENT [None]
  - VENTRICULAR EXTRASYSTOLES [None]
